FAERS Safety Report 6109638-7 (Version None)
Quarter: 2009Q1

REPORT INFORMATION
  Report Type: 
  Country: None (occurrence: None)
  Receive Date: 20090310
  Receipt Date: 20080115
  Transmission Date: 20090719
  Serious: No
  Sender: FDA-Public Use
  Company Number: A0703238A

PATIENT
  Age: 41 Year
  Sex: Female

DRUGS (1)
  1. NICORETTE [Suspect]
     Dates: start: 20071209, end: 20080112

REACTIONS (5)
  - CHANGE OF BOWEL HABIT [None]
  - DIZZINESS [None]
  - INTENTIONAL DRUG MISUSE [None]
  - NAUSEA [None]
  - NICOTINE DEPENDENCE [None]
